FAERS Safety Report 23908157 (Version 1)
Quarter: 2024Q2

REPORT INFORMATION
  Report Type: Spontaneous
  Country: PL (occurrence: None)
  Receive Date: 20240528
  Receipt Date: 20240528
  Transmission Date: 20240715
  Serious: Yes (Life-Threatening)
  Sender: FDA-Public Use
  Company Number: 2024A122230

PATIENT
  Sex: Female

DRUGS (1)
  1. ONDEXXYA [Suspect]
     Active Substance: ANDEXANET ALFA
     Route: 042

REACTIONS (2)
  - Cardiac tamponade [Unknown]
  - Incorrect dosage administered [Unknown]
